FAERS Safety Report 4600022-1 (Version None)
Quarter: 2005Q1

REPORT INFORMATION
  Report Type: 
  Country: None (occurrence: None)
  Receive Date: 20050303
  Receipt Date: 20050214
  Transmission Date: 20050727
  Serious: No
  Sender: FDA-Public Use
  Company Number: 10310

PATIENT
  Age: 74 Year
  Sex: Female

DRUGS (6)
  1. PAMIDRONATE DISODIUM [Suspect]
     Indication: BREAST CANCER
  2. ZOLEDRONIC ACID [Suspect]
     Indication: BREAST CANCER
  3. DOCETAXEL [Concomitant]
  4. TAMOXIFEN CITRATE [Concomitant]
  5. LETROZOLE [Concomitant]
  6. EXEMESTANE [Concomitant]

REACTIONS (2)
  - JAW DISORDER [None]
  - OSTEONECROSIS [None]
